FAERS Safety Report 21950842 (Version 1)
Quarter: 2023Q1

REPORT INFORMATION
  Report Type: Spontaneous
  Country: US (occurrence: None)
  Receive Date: 20230203
  Receipt Date: 20230203
  Transmission Date: 20230418
  Serious: Yes (Hospitalization)
  Sender: FDA-Public Use
  Company Number: None

PATIENT
  Age: 20 Year
  Sex: Female

DRUGS (3)
  1. ADAKVEO [Suspect]
     Active Substance: CRIZANLIZUMAB-TMCA
     Indication: Sickle cell anaemia with crisis
     Dosage: OTHER QUANTITY : 270MG/27ML;?FREQUENCY : MONTHLY;?
     Route: 042
     Dates: start: 202209
  2. ADAKVEO [Suspect]
     Active Substance: CRIZANLIZUMAB-TMCA
     Indication: Sickle cell disease
  3. OXBRYTA [Concomitant]

REACTIONS (2)
  - Therapy interrupted [None]
  - Sickle cell anaemia with crisis [None]

NARRATIVE: CASE EVENT DATE: 20230130
